FAERS Safety Report 5523471-6 (Version None)
Quarter: 2007Q4

REPORT INFORMATION
  Report Type: 
  Country: None (occurrence: None)
  Receive Date: 20071121
  Receipt Date: 20071112
  Transmission Date: 20080405
  Serious: Yes (Hospitalization)
  Sender: FDA-Public Use
  Company Number: US-AMGEN-QUU248346

PATIENT
  Sex: Female
  Weight: 89 kg

DRUGS (2)
  1. ENBREL [Suspect]
     Indication: RHEUMATOID ARTHRITIS
     Route: 058
     Dates: start: 20050216, end: 20070201
  2. ARAVA [Concomitant]
     Dates: start: 20010101

REACTIONS (4)
  - DEVICE RELATED INFECTION [None]
  - KNEE ARTHROPLASTY [None]
  - LOCALISED INFECTION [None]
  - RHEUMATOID ARTHRITIS [None]
